FAERS Safety Report 5337791-1 (Version None)
Quarter: 2007Q2

REPORT INFORMATION
  Report Type: 
  Country: None (occurrence: None)
  Receive Date: 20070308
  Receipt Date: 20061218
  Transmission Date: 20071010
  Serious: No
  Sender: FDA-Public Use
  Company Number: 2006-BP-14727BP

PATIENT
  Sex: Male

DRUGS (2)
  1. SPIRIVA [Suspect]
  2. ALBUTEROL NEBULIZER (SALBUTAMOL) [Concomitant]

REACTIONS (1)
  - BACTERIAL INFECTION [None]
